FAERS Safety Report 6497158-X (Version None)
Quarter: 2009Q4

REPORT INFORMATION
  Report Type: 
  Country: None (occurrence: None)
  Receive Date: 20091215
  Receipt Date: 20090511
  Transmission Date: 20100525
  Serious: No
  Sender: FDA-Public Use
  Company Number: A0781592A

PATIENT
  Age: 67 Year
  Sex: Male

DRUGS (3)
  1. AVODART [Suspect]
     Indication: DRUG USE FOR UNKNOWN INDICATION
     Route: 048
  2. FLOMAX [Suspect]
     Route: 065
     Dates: start: 20090211, end: 20090507
  3. DETROL LA [Suspect]
     Route: 065

REACTIONS (5)
  - DRUG INEFFECTIVE [None]
  - INITIAL INSOMNIA [None]
  - NOCTURIA [None]
  - RENAL CYST [None]
  - URINE OUTPUT DECREASED [None]
